FAERS Safety Report 8851260 (Version 3)
Quarter: 2013Q3

REPORT INFORMATION
  Report Type: Spontaneous
  Country: US (occurrence: US)
  Receive Date: 20121019
  Receipt Date: 20130808
  Transmission Date: 20140515
  Serious: Yes (Other)
  Sender: FDA-Public Use
  Company Number: US-PFIZER INC-2012260436

PATIENT
  Age: 61 Year
  Sex: Female
  Weight: 47.62 kg

DRUGS (1)
  1. LYRICA [Suspect]
     Indication: FIBROMYALGIA
     Dosage: 100 MG, 2X/DAY

REACTIONS (5)
  - Multiple sclerosis [Unknown]
  - Mobility decreased [Unknown]
  - Memory impairment [Unknown]
  - Malaise [Unknown]
  - Drug withdrawal syndrome [Unknown]
